FAERS Safety Report 4862180-3 (Version None)
Quarter: 2005Q4

REPORT INFORMATION
  Report Type: 
  Country: None (occurrence: None)
  Receive Date: 20051221
  Receipt Date: 20051215
  Transmission Date: 20060501
  Serious: Yes (Life-Threatening)
  Sender: FDA-Public Use
  Company Number: 2005CG02088

PATIENT
  Age: 63 Year
  Sex: Female

DRUGS (7)
  1. ARIMIDEX [Suspect]
     Indication: BREAST CANCER
     Route: 048
     Dates: start: 20051114, end: 20051117
  2. KENZEN [Concomitant]
  3. LOGIMAX [Concomitant]
  4. PLAVIX [Concomitant]
  5. SPIRONOLACTONE [Concomitant]
  6. METFORMINE [Concomitant]
  7. ELISOR [Concomitant]

REACTIONS (3)
  - DYSPNOEA [None]
  - FACE OEDEMA [None]
  - RASH [None]
